FAERS Safety Report 5026268-9 (Version None)
Quarter: 2006Q2

REPORT INFORMATION
  Report Type: 
  Country: None (occurrence: None)
  Receive Date: 20060608
  Receipt Date: 20060529
  Transmission Date: 20061013
  Serious: Yes (Other)
  Sender: FDA-Public Use
  Company Number: 2006059154

PATIENT
  Age: 65 Year
  Sex: Male
  Weight: 53 kg

DRUGS (1)
  1. FRAGMIN [Suspect]
     Indication: THROMBOSIS PROPHYLAXIS
     Dosage: 5000 I.U. (1 IN 1 D), SUBCUTANEOUS
     Route: 058
     Dates: start: 20060420, end: 20060504

REACTIONS (1)
  - THROMBOCYTHAEMIA [None]
